FAERS Safety Report 9198203 (Version 1)
Quarter: 2013Q1

REPORT INFORMATION
  Report Type: Spontaneous
  Country: US (occurrence: US)
  Receive Date: 20130329
  Receipt Date: 20130329
  Transmission Date: 20140127
  Serious: Yes (Hospitalization)
  Sender: FDA-Public Use
  Company Number: US-BIOGENIDEC-2013BI027370

PATIENT
  Age: 32 Year
  Sex: Female

DRUGS (1)
  1. AVONEX [Suspect]
     Indication: MULTIPLE SCLEROSIS
     Route: 030

REACTIONS (5)
  - Respiratory failure [Recovered/Resolved]
  - Pneumonia [Unknown]
  - Staphylococcal infection [Unknown]
  - Oxygen saturation decreased [Recovered/Resolved]
  - Influenza like illness [Unknown]
